FAERS Safety Report 8389245-6 (Version None)
Quarter: 2012Q2

REPORT INFORMATION
  Report Type: 
  Country: None (occurrence: None)
  Receive Date: 20120528
  Receipt Date: 20120430
  Transmission Date: 20120825
  Serious: Yes (Other)
  Sender: FDA-Public Use
  Company Number: DE-UCBSA-057649

PATIENT

DRUGS (1)
  1. KEPPRA [Suspect]

REACTIONS (1)
  - LEUKAEMIA [None]
